FAERS Safety Report 8779789 (Version 3)
Quarter: 2012Q4

REPORT INFORMATION
  Report Type: 
  Country: GB (occurrence: GB)
  Receive Date: 20120913
  Receipt Date: 20121029
  Transmission Date: 20130627
  Serious: Yes (Hospitalization, Other)
  Sender: FDA-Public Use
  Company Number: GB-TEVA-358061ISR

PATIENT
  Age: 94 Year
  Sex: Female

DRUGS (9)
  1. SIMVASTATIN [Suspect]
     Indication: HYPERCHOLESTEROLAEMIA
     Route: 048
     Dates: start: 20100426
  2. SLOZEM [Suspect]
     Indication: HYPERTENSION
     Dosage: 120 Milligram Daily; in the morning
     Route: 048
     Dates: start: 20100426
  3. ALLOPURINOL [Concomitant]
  4. ASPIRIN [Concomitant]
  5. FERROUS SULPHATE [Concomitant]
  6. FUROSEMIDE [Concomitant]
  7. MIRTAZAPINE [Concomitant]
  8. RAMIPRIL [Concomitant]
  9. OMEPRAZOLE [Concomitant]

REACTIONS (7)
  - Rhabdomyolysis [Recovering/Resolving]
  - Mobility decreased [Recovering/Resolving]
  - Swelling face [Recovering/Resolving]
  - Contusion [Recovering/Resolving]
  - Drug interaction [Unknown]
  - Fall [Unknown]
  - Blood creatine phosphokinase increased [Unknown]
